FAERS Safety Report 14113840 (Version 8)
Quarter: 2019Q1

REPORT INFORMATION
  Report Type: Report from Study
  Country: JP (occurrence: JP)
  Receive Date: 20171023
  Receipt Date: 20190102
  Transmission Date: 20190417
  Serious: Yes (Death, Life-Threatening, Hospitalization, Other)
  Sender: FDA-Public Use
  Company Number: JP-BRISTOL-MYERS SQUIBB COMPANY-BMS-2017-071515

PATIENT
  Age: 50 Year
  Sex: Male
  Weight: 52 kg

DRUGS (1)
  1. NIVOLUMAB [Suspect]
     Active Substance: NIVOLUMAB
     Indication: METASTATIC RENAL CELL CARCINOMA
     Dosage: 3 MG/KG, Q2WK
     Route: 041
     Dates: start: 20161203, end: 20170704

REACTIONS (8)
  - Abscess [Unknown]
  - Blood bilirubin increased [Unknown]
  - Malignant neoplasm progression [Fatal]
  - Drug-induced liver injury [Not Recovered/Not Resolved]
  - Diarrhoea [Recovering/Resolving]
  - Autoimmune hepatitis [Not Recovered/Not Resolved]
  - Fatigue [Recovering/Resolving]
  - Duodenal ulcer perforation [Not Recovered/Not Resolved]

NARRATIVE: CASE EVENT DATE: 2017
